FAERS Safety Report 11028035 (Version 3)
Quarter: 2016Q1

REPORT INFORMATION
  Report Type: Spontaneous
  Country: US (occurrence: US)
  Receive Date: 20150414
  Receipt Date: 20160113
  Transmission Date: 20160525
  Serious: No
  Sender: FDA-Public Use
  Company Number: US-GLAXOSMITHKLINE-US2015GSK050058

PATIENT
  Sex: Female

DRUGS (3)
  1. LAMICTAL [Suspect]
     Active Substance: LAMOTRIGINE
     Indication: BIPOLAR I DISORDER
     Dosage: 25 MG, U
     Dates: start: 20150307
  2. LAMICTAL [Suspect]
     Active Substance: LAMOTRIGINE
     Dosage: 100 MG, U
     Dates: start: 2015
  3. LAMICTAL [Suspect]
     Active Substance: LAMOTRIGINE
     Dosage: UNK
     Route: 048
     Dates: end: 2015

REACTIONS (12)
  - Drug hypersensitivity [Unknown]
  - Drug ineffective [Unknown]
  - Suffocation feeling [Unknown]
  - Anxiety [Unknown]
  - Hypersensitivity [Unknown]
  - Malaise [Unknown]
  - Dizziness [Unknown]
  - Ill-defined disorder [Unknown]
  - Dyspnoea [Unknown]
  - Panic reaction [Unknown]
  - Nausea [Unknown]
  - Headache [Unknown]

NARRATIVE: CASE EVENT DATE: 2015
